FAERS Safety Report 9440542 (Version 1)
Quarter: 2013Q3

REPORT INFORMATION
  Report Type: Spontaneous
  Country: FR (occurrence: FR)
  Receive Date: 20130805
  Receipt Date: 20130805
  Transmission Date: 20140515
  Serious: Yes (Hospitalization)
  Sender: FDA-Public Use
  Company Number: FR-ELI_LILLY_AND_COMPANY-FR201307008225

PATIENT
  Age: 59 Year
  Sex: Male

DRUGS (4)
  1. ALIMTA [Suspect]
     Indication: LUNG CANCER METASTATIC
     Dosage: 900 MG, UNKNOWN
     Route: 042
     Dates: start: 20130205
  2. CISPLATIN [Suspect]
     Indication: LUNG CANCER METASTATIC
     Dosage: 130 MG, UNKNOWN
     Route: 042
     Dates: start: 20130205
  3. KEPPRA [Concomitant]
  4. INEXIUM                            /01479302/ [Concomitant]

REACTIONS (1)
  - Peripheral ischaemia [Recovered/Resolved]
